FAERS Safety Report 22285120 (Version 1)
Quarter: 2023Q2

REPORT INFORMATION
  Report Type: Spontaneous
  Country: US (occurrence: None)
  Receive Date: 20230503
  Receipt Date: 20230503
  Transmission Date: 20230722
  Serious: No
  Sender: FDA-Public Use
  Company Number: None

PATIENT
  Sex: Male

DRUGS (1)
  1. RINVOQ [Suspect]
     Active Substance: UPADACITINIB
     Indication: Inflammatory bowel disease
     Dosage: 15MG DAILY ORAL?
     Route: 048
     Dates: start: 20221202

REACTIONS (2)
  - Condition aggravated [None]
  - Drug ineffective [None]
